FAERS Safety Report 9183241 (Version 1)
Quarter: 2013Q1

REPORT INFORMATION
  Report Type: Spontaneous
  Country: US (occurrence: US)
  Receive Date: 20130322
  Receipt Date: 20130322
  Transmission Date: 20140127
  Serious: Yes (Life-Threatening)
  Sender: FDA-Public Use
  Company Number: US-BRISTOL-MYERS SQUIBB COMPANY-17081134

PATIENT
  Sex: 0

DRUGS (2)
  1. ERBITUX [Suspect]
     Indication: HEAD AND NECK CANCER
  2. MINOCYCLINE [Suspect]
     Indication: PROPHYLAXIS

REACTIONS (3)
  - Swollen tongue [Unknown]
  - Oral mucosal erythema [Unknown]
  - Erythema [Unknown]
